FAERS Safety Report 10530450 (Version 1)
Quarter: 2014Q4

REPORT INFORMATION
  Report Type: Report from Study
  Country: EG (occurrence: EG)
  Receive Date: 20141021
  Receipt Date: 20141021
  Transmission Date: 20150528
  Serious: Yes (Other)
  Sender: FDA-Public Use
  Company Number: EG-SA-2014SA143121

PATIENT
  Age: 74 Year
  Sex: Female
  Weight: 110 kg

DRUGS (4)
  1. ALL OTHER THERAPEUTIC PRODUCTS [Concomitant]
     Active Substance: UNSPECIFIED INGREDIENT
  2. LANTUS [Suspect]
     Active Substance: INSULIN GLARGINE
     Indication: TYPE 2 DIABETES MELLITUS
     Route: 058
     Dates: start: 201404
  3. DIAMICRON [Concomitant]
     Active Substance: GLICLAZIDE
  4. ALL OTHER THERAPEUTIC PRODUCTS [Concomitant]
     Active Substance: UNSPECIFIED INGREDIENT

REACTIONS (2)
  - Blood glucose increased [Recovered/Resolved]
  - Eye operation [Unknown]

NARRATIVE: CASE EVENT DATE: 20140920
